FAERS Safety Report 5679231-9 (Version None)
Quarter: 2008Q1

REPORT INFORMATION
  Report Type: 
  Country: None (occurrence: None)
  Receive Date: 20080325
  Receipt Date: 20080318
  Transmission Date: 20080703
  Serious: Yes (Other)
  Sender: FDA-Public Use
  Company Number: JP-BRISTOL-MYERS SQUIBB COMPANY-14118574

PATIENT
  Age: 61 Year
  Sex: Male

DRUGS (3)
  1. ABILIFY [Suspect]
     Indication: SCHIZOPHRENIA
     Route: 048
     Dates: start: 20080303, end: 20080310
  2. BIPERIDEN HYDROCHLORIDE TAB [Concomitant]
     Dates: start: 20080303
  3. NITRAZEPAM [Concomitant]

REACTIONS (3)
  - CONVULSION [None]
  - FALL [None]
  - SUBARACHNOID HAEMORRHAGE [None]
